FAERS Safety Report 19487412 (Version 1)
Quarter: 2021Q3

REPORT INFORMATION
  Report Type: Spontaneous
  Country: RU (occurrence: RU)
  Receive Date: 20210702
  Receipt Date: 20210702
  Transmission Date: 20211014
  Serious: Yes (Other)
  Sender: FDA-Public Use
  Company Number: RU-ASTRAZENECA-2021A582098

PATIENT
  Sex: Female
  Weight: .7 kg

DRUGS (2)
  1. PULMICORT TURBUHALER [Suspect]
     Active Substance: BUDESONIDE
     Indication: BRONCHOPULMONARY DYSPLASIA
     Route: 055
  2. PULMICORT TURBUHALER [Suspect]
     Active Substance: BUDESONIDE
     Indication: BRONCHOPULMONARY DYSPLASIA
     Route: 055

REACTIONS (3)
  - Pneumonia [Recovered/Resolved]
  - Obstruction [Recovered/Resolved]
  - Off label use [Not Recovered/Not Resolved]
